FAERS Safety Report 24655742 (Version 1)
Quarter: 2024Q4

REPORT INFORMATION
  Report Type: Spontaneous
  Country: US (occurrence: US)
  Receive Date: 20241123
  Receipt Date: 20241123
  Transmission Date: 20250114
  Serious: No
  Sender: Kenvue
  Company Number: US-KENVUE-20241030870

PATIENT
  Age: 70 Year
  Sex: Female

DRUGS (2)
  1. WOMENS ROGAINE [Suspect]
     Active Substance: MINOXIDIL
     Indication: Alopecia
     Dosage: UNK , TWICE A DAY
     Route: 061
     Dates: start: 20171022
  2. WOMENS ROGAINE UNSCENTED [Suspect]
     Active Substance: MINOXIDIL
     Indication: Alopecia
     Dosage: UNK, ONCE A DAY
     Route: 061
     Dates: start: 20241022

REACTIONS (2)
  - Application site irritation [Unknown]
  - Head discomfort [Unknown]

NARRATIVE: CASE EVENT DATE: 20171025
